FAERS Safety Report 15232900 (Version 1)
Quarter: 2018Q3

REPORT INFORMATION
  Report Type: Spontaneous
  Country: US (occurrence: US)
  Receive Date: 20180709
  Receipt Date: 20180709
  Transmission Date: 20181010
  Serious: Yes (Disabling)
  Sender: FDA-Public Use
  Company Number: None

PATIENT
  Age: 63 Year
  Sex: Male
  Weight: 74.25 kg

DRUGS (5)
  1. LEVOTHYRINE [Concomitant]
  2. OMEPRAZOLE. [Concomitant]
     Active Substance: OMEPRAZOLE
  3. LISINIPRIL [Concomitant]
     Active Substance: LISINOPRIL
  4. MULTIVITAMINS [Concomitant]
     Active Substance: VITAMINS
  5. DEBROX [Suspect]
     Active Substance: CARBAMIDE PEROXIDE
     Indication: CERUMEN REMOVAL
     Dosage: ?          QUANTITY:0.5 OUNCE(S);?
     Route: 001
     Dates: start: 20180530, end: 20180530

REACTIONS (3)
  - Tinnitus [None]
  - Ear discomfort [None]
  - Product quality issue [None]

NARRATIVE: CASE EVENT DATE: 20180530
